FAERS Safety Report 4483958-4 (Version None)
Quarter: 2004Q4

REPORT INFORMATION
  Report Type: 
  Country: None (occurrence: None)
  Receive Date: 20041025
  Receipt Date: 20040427
  Transmission Date: 20050328
  Serious: Yes (Life-Threatening)
  Sender: FDA-Public Use
  Company Number: US-BRISTOL-MYERS SQUIBB COMPANY-12572319

PATIENT
  Age: 43 Year
  Sex: Male
  Weight: 92 kg

DRUGS (4)
  1. EFAVIRENZ [Suspect]
     Indication: HIV INFECTION
     Route: 048
     Dates: start: 20020603
  2. MOTRIN [Concomitant]
     Dates: start: 20020603
  3. M.V.I. [Concomitant]
     Dates: start: 20020603
  4. LOTRIMIN [Concomitant]
     Dosage: 1% LOTION
     Dates: start: 20020801

REACTIONS (1)
  - LOW DENSITY LIPOPROTEIN INCREASED [None]
